FAERS Safety Report 8137344-6 (Version None)
Quarter: 2012Q1

REPORT INFORMATION
  Report Type: 
  Country: None (occurrence: None)
  Receive Date: 20120210
  Receipt Date: 20120125
  Transmission Date: 20120608
  Serious: Yes (Other)
  Sender: FDA-Public Use
  Company Number: FK201200201

PATIENT
  Sex: Female

DRUGS (4)
  1. FLUOROURACIL [Suspect]
     Indication: BREAST CANCER
     Dosage: 500 MG/M2
  2. DOCETAXEL [Suspect]
     Indication: BREAST CANCER
     Dosage: 100 MG/M2
  3. CYCLOPHOSPHAMIDE [Suspect]
     Indication: BREAST CANCER
     Dosage: 500 MG/M2
  4. EPIRUBICIN [Suspect]
     Indication: BREAST CANCER
     Dosage: 100 MG/M2

REACTIONS (7)
  - HOT FLUSH [None]
  - VAGINAL HAEMORRHAGE [None]
  - AMENORRHOEA [None]
  - ARTHRALGIA [None]
  - POSTMENOPAUSE [None]
  - MENOPAUSAL SYMPTOMS [None]
  - SMEAR CERVIX ABNORMAL [None]
